FAERS Safety Report 5220767-2 (Version None)
Quarter: 2007Q1

REPORT INFORMATION
  Report Type: 
  Country: None (occurrence: None)
  Receive Date: 20070126
  Receipt Date: 20070115
  Transmission Date: 20070707
  Serious: Yes (Hospitalization)
  Sender: FDA-Public Use
  Company Number: PHEH2007US00756

PATIENT
  Age: 63 Year
  Sex: Male
  Weight: 88.435 kg

DRUGS (4)
  1. LOTREL [Suspect]
     Indication: HYPERTENSION
     Dosage: 5/20 MG, UNK
     Route: 048
     Dates: start: 20060829, end: 20061209
  2. MAXZIDE [Concomitant]
     Dosage: 37.5/25, UNK
     Dates: start: 20061127
  3. NORVASC [Concomitant]
     Dosage: 5 MG, UNK
  4. INSULIN [Concomitant]

REACTIONS (7)
  - ACUTE PRERENAL FAILURE [None]
  - BLOOD CREATININE INCREASED [None]
  - DIZZINESS [None]
  - DYSPNOEA [None]
  - FATIGUE [None]
  - HYPOTENSION [None]
  - RENAL FAILURE [None]
